FAERS Safety Report 17451996 (Version 2)
Quarter: 2020Q1

REPORT INFORMATION
  Report Type: Spontaneous
  Country: IE (occurrence: IE)
  Receive Date: 20200224
  Receipt Date: 20200303
  Transmission Date: 20200409
  Serious: Yes (Life-Threatening, Hospitalization, Other)
  Sender: FDA-Public Use
  Company Number: IE-ASTRAZENECA-2020SE24056

PATIENT
  Age: 67 Year
  Sex: Female
  Weight: 134.5 kg

DRUGS (3)
  1. JANUMET [Concomitant]
     Active Substance: METFORMIN HYDROCHLORIDE\SITAGLIPTIN PHOSPHATE
  2. FORXIGA [Suspect]
     Active Substance: DAPAGLIFLOZIN
     Indication: TYPE 2 DIABETES MELLITUS
     Dosage: 10.0MG UNKNOWN
     Route: 048
  3. ASPIRIN. [Concomitant]
     Active Substance: ASPIRIN

REACTIONS (12)
  - Endometrial cancer [Unknown]
  - Liver function test abnormal [Unknown]
  - Anaemia [Unknown]
  - Hyperkeratosis [Unknown]
  - Constipation [Unknown]
  - Malaise [Unknown]
  - Euglycaemic diabetic ketoacidosis [Recovering/Resolving]
  - Blood cholesterol abnormal [Unknown]
  - Glycosylated haemoglobin increased [Unknown]
  - Body mass index increased [Unknown]
  - Platelet count decreased [Unknown]
  - Low density lipoprotein increased [Unknown]
